FAERS Safety Report 14783248 (Version 1)
Quarter: 2018Q2

REPORT INFORMATION
  Report Type: Spontaneous
  Country: US (occurrence: US)
  Receive Date: 20180420
  Receipt Date: 20180420
  Transmission Date: 20180711
  Serious: Yes (Other)
  Sender: FDA-Public Use
  Company Number: US-AMGEN-USASP2018051866

PATIENT
  Age: 75 Year
  Sex: Female

DRUGS (1)
  1. PROLIA [Suspect]
     Active Substance: DENOSUMAB
     Indication: OSTEOPOROSIS POSTMENOPAUSAL
     Dosage: 60 MG, Q6MO
     Route: 065

REACTIONS (9)
  - Memory impairment [Unknown]
  - Tendon sheath incision [Unknown]
  - Paraesthesia [Unknown]
  - Pain [Recovering/Resolving]
  - Mobility decreased [Not Recovered/Not Resolved]
  - Grip strength decreased [Unknown]
  - Hand deformity [Unknown]
  - Carpal tunnel decompression [Unknown]
  - Hypoaesthesia [Unknown]

NARRATIVE: CASE EVENT DATE: 2017
